FAERS Safety Report 14336206 (Version 1)
Quarter: 2017Q4

REPORT INFORMATION
  Report Type: Spontaneous
  Country: BR (occurrence: BR)
  Receive Date: 20171229
  Receipt Date: 20171229
  Transmission Date: 20180321
  Serious: Yes (Disabling, Other)
  Sender: FDA-Public Use
  Company Number: BR-ABBVIE-17P-020-2206345-00

PATIENT
  Sex: Female
  Weight: 31 kg

DRUGS (11)
  1. DEPAKOTE [Suspect]
     Active Substance: DIVALPROEX SODIUM
     Indication: EPILEPSY
     Route: 048
     Dates: start: 2002
  2. NEULEPTIL [Concomitant]
     Active Substance: PERICIAZINE
     Indication: DISTURBANCE IN ATTENTION
     Dosage: 3 OR 4 DROPS
     Route: 048
  3. DEPAKENE [Suspect]
     Active Substance: VALPROIC ACID
     Indication: SEIZURE
     Route: 048
  4. FRISIUM [Concomitant]
     Active Substance: CLOBAZAM
     Indication: EPILEPSY
     Route: 048
     Dates: start: 2005, end: 2017
  5. GARDENAL [Concomitant]
     Active Substance: PHENOBARBITAL
     Indication: EPILEPSY
     Route: 048
     Dates: start: 2005
  6. PRIMIDONE. [Concomitant]
     Active Substance: PRIMIDONE
     Indication: SEIZURE
     Route: 048
  7. RIVOTRIL [Concomitant]
     Active Substance: CLONAZEPAM
     Indication: EPILEPSY
     Dosage: 1 TABLET; AT NIGHT
     Route: 048
  8. DOGMATIL [Concomitant]
     Active Substance: SULPIRIDE
     Indication: SEIZURE
     Route: 048
  9. DEPAKOTE [Suspect]
     Active Substance: DIVALPROEX SODIUM
     Route: 048
  10. GARDENAL [Concomitant]
     Active Substance: PHENOBARBITAL
     Route: 048
  11. URBANIL [Concomitant]
     Active Substance: CLOBAZAM
     Indication: EPILEPSY
     Route: 048

REACTIONS (8)
  - Speech disorder developmental [Not Recovered/Not Resolved]
  - Cognitive disorder [Not Recovered/Not Resolved]
  - Off label use [Unknown]
  - Product use issue [Unknown]
  - Epilepsy [Unknown]
  - Malaise [Unknown]
  - Blood cholesterol increased [Not Recovered/Not Resolved]
  - Secretion discharge [Unknown]
